FAERS Safety Report 5163708-9 (Version None)
Quarter: 2006Q4

REPORT INFORMATION
  Report Type: 
  Country: None (occurrence: None)
  Receive Date: 20061204
  Receipt Date: 20020701
  Transmission Date: 20070319
  Serious: Yes (Hospitalization)
  Sender: FDA-Public Use
  Company Number: FR-GLAXOSMITHKLINE-B0273256A

PATIENT
  Sex: Male
  Weight: 1.4 kg

DRUGS (5)
  1. RETROVIR [Suspect]
     Indication: ANTIVIRAL PROPHYLAXIS
     Route: 048
     Dates: start: 20020517
  2. RETROVIR [Suspect]
     Dosage: 2MG TWICE PER DAY
     Route: 042
     Dates: start: 20020513, end: 20020517
  3. RETROVIR [Suspect]
     Dosage: 200MG TWICE PER DAY
     Route: 065
     Dates: start: 20020513, end: 20020513
  4. SALBUTAMOL [Concomitant]
     Route: 042
     Dates: start: 20020401, end: 20020401
  5. METHADONE HCL [Concomitant]
     Indication: DRUG DEPENDENCE
     Route: 048
     Dates: start: 19980101

REACTIONS (10)
  - ANAEMIA [None]
  - DRUG EXPOSURE DURING PREGNANCY [None]
  - DRUG WITHDRAWAL SYNDROME [None]
  - HYPERTONIA [None]
  - NEUTROPENIA [None]
  - OVERDOSE [None]
  - RESPIRATORY DISTRESS [None]
  - RESTLESSNESS [None]
  - THROMBOCYTHAEMIA [None]
  - TREMOR [None]
